FAERS Safety Report 14324876 (Version 1)
Quarter: 2017Q4

REPORT INFORMATION
  Report Type: Spontaneous
  Country: US (occurrence: US)
  Receive Date: 20171226
  Receipt Date: 20171226
  Transmission Date: 20180321
  Serious: Yes (Life-Threatening, Hospitalization)
  Sender: FDA-Public Use
  Company Number: None

PATIENT
  Age: 40 Year
  Sex: Female
  Weight: 63.96 kg

DRUGS (1)
  1. CYTOTEC [Suspect]
     Active Substance: MISOPROSTOL
     Indication: INDUCED LABOUR
     Route: 067
     Dates: start: 20171101, end: 20171102

REACTIONS (4)
  - Disseminated intravascular coagulation [None]
  - Haemorrhage [None]
  - Uterine rupture [None]
  - Haemodynamic instability [None]

NARRATIVE: CASE EVENT DATE: 20171102
